FAERS Safety Report 5060150-6 (Version None)
Quarter: 2006Q3

REPORT INFORMATION
  Report Type: 
  Country: None (occurrence: None)
  Receive Date: 20060724
  Receipt Date: 20060524
  Transmission Date: 20061208
  Serious: Yes (Life-Threatening, Hospitalization)
  Sender: FDA-Public Use
  Company Number: GBWYE652124MAY06

PATIENT
  Sex: Female
  Weight: 89 kg

DRUGS (10)
  1. ENBREL [Suspect]
     Indication: RHEUMATOID ARTHRITIS
     Route: 058
     Dates: start: 20060207, end: 20060520
  2. SULFASALAZINE [Concomitant]
     Indication: RHEUMATOID ARTHRITIS
     Dates: start: 20050221
  3. FOLIC ACID [Concomitant]
     Dosage: 5MG 6 DAYS A WEEK
  4. CODEINE PHOSPHATE/PARACETAMOL [Concomitant]
     Dosage: AS NEEDED
  5. CODEINE PHOSPHATE/PARACETAMOL [Concomitant]
     Dosage: AS NEEDED
  6. ETORICOXIB [Concomitant]
     Indication: RHEUMATOID ARTHRITIS
     Dosage: 60MG DAILY
     Route: 048
     Dates: start: 20031001
  7. COMBIVENT [Concomitant]
     Indication: COUGH
     Dosage: 4 TIMES A DAY
     Dates: start: 20020101
  8. SALMETEROL/FLUTICASONE [Concomitant]
     Indication: COUGH
     Dosage: 2 TIMES A DAY
     Dates: start: 20020101
  9. METHOTREXATE [Concomitant]
     Indication: RHEUMATOID ARTHRITIS
     Dates: start: 20020101
  10. OMEPRAZOLE [Concomitant]
     Dates: start: 20020101

REACTIONS (6)
  - ANAPHYLACTIC SHOCK [None]
  - ANGIONEUROTIC OEDEMA [None]
  - DEPRESSED LEVEL OF CONSCIOUSNESS [None]
  - RASH [None]
  - SWELLING FACE [None]
  - URTICARIA [None]
